FAERS Safety Report 4937594-3 (Version None)
Quarter: 2006Q1

REPORT INFORMATION
  Report Type: 
  Country: None (occurrence: None)
  Receive Date: 20060308
  Receipt Date: 20060308
  Transmission Date: 20060701
  Serious: No
  Sender: FDA-Public Use
  Company Number: None

PATIENT
  Age: 94 Year
  Sex: Female

DRUGS (1)
  1. VIGAMOX [Suspect]
     Indication: SCLERITIS
     Dosage: 1 GTT Q 1H X 3 DAY THEN QID X 4 DAYS
     Route: 047

REACTIONS (1)
  - DRUG INEFFECTIVE [None]
